FAERS Safety Report 13110969 (Version 1)
Quarter: 2017Q1

REPORT INFORMATION
  Report Type: Report from Study
  Country: US (occurrence: US)
  Receive Date: 20170112
  Receipt Date: 20170112
  Transmission Date: 20170428
  Serious: Yes (Other)
  Sender: FDA-Public Use
  Company Number: US-PFIZER INC-2017008232

PATIENT

DRUGS (3)
  1. PACLITAXEL. [Concomitant]
     Active Substance: PACLITAXEL
     Indication: SQUAMOUS CELL CARCINOMA
     Dosage: 30-45 MG/M2, WEEKLY
  2. CELECOXIB. [Suspect]
     Active Substance: CELECOXIB
     Indication: SQUAMOUS CELL CARCINOMA
     Dosage: 400MG BID ON EACH DAY OF RADIOTHERAPY
  3. CARBOPLATIN. [Concomitant]
     Active Substance: CARBOPLATIN
     Indication: SQUAMOUS CELL CARCINOMA
     Dosage: AUC=2.0, WEEKLY

REACTIONS (1)
  - Febrile neutropenia [Unknown]
